FAERS Safety Report 12876906 (Version 1)
Quarter: 2016Q4

REPORT INFORMATION
  Report Type: Spontaneous
  Country: US (occurrence: US)
  Receive Date: 20161024
  Receipt Date: 20161024
  Transmission Date: 20170207
  Serious: No
  Sender: FDA-Public Use
  Company Number: US-GLAXOSMITHKLINE-US2016155887

PATIENT
  Age: 59 Year
  Sex: Female

DRUGS (2)
  1. ALLI [Suspect]
     Active Substance: ORLISTAT
     Indication: FOOD CRAVING
  2. ALLI [Suspect]
     Active Substance: ORLISTAT
     Indication: WEIGHT LOSS DIET
     Dosage: UNK
     Route: 048
     Dates: start: 20161006

REACTIONS (3)
  - Steatorrhoea [Not Recovered/Not Resolved]
  - Intentional product use issue [Unknown]
  - Drug ineffective [Unknown]

NARRATIVE: CASE EVENT DATE: 20161011
